FAERS Safety Report 6194580-6 (Version None)
Quarter: 2009Q2

REPORT INFORMATION
  Report Type: 
  Country: None (occurrence: None)
  Receive Date: 20090519
  Receipt Date: 20090504
  Transmission Date: 20091009
  Serious: Yes (Hospitalization)
  Sender: FDA-Public Use
  Company Number: NL-ROCHE-631199

PATIENT
  Sex: Female

DRUGS (2)
  1. PEG-INTERFERON ALFA 2A (RO 25-8310) [Suspect]
     Indication: HEPATITIS B
     Route: 058
     Dates: start: 20080811
  2. ORAL CONTRACEPTIVE NOS [Concomitant]
     Dosage: DRUG REPORTED AS 'UNSPECIFIED ORAL CONTRACEPTIVE'.
     Route: 048

REACTIONS (8)
  - BONE PAIN [None]
  - FATIGUE [None]
  - INFLUENZA LIKE ILLNESS [None]
  - INJECTION SITE PAIN [None]
  - LEUKOPENIA [None]
  - PYREXIA [None]
  - QUADRIPLEGIA [None]
  - RASH [None]
